FAERS Safety Report 9419592 (Version 1)
Quarter: 2013Q3

REPORT INFORMATION
  Report Type: Spontaneous
  Country: US (occurrence: None)
  Receive Date: 20130724
  Receipt Date: 20130724
  Transmission Date: 20140515
  Serious: Yes (Other)
  Sender: FDA-Public Use
  Company Number: None

PATIENT
  Sex: Female
  Weight: 54.43 kg

DRUGS (1)
  1. ALENDRONATE SODIUM [Suspect]
     Route: 048
     Dates: start: 20130105, end: 20130108

REACTIONS (3)
  - Musculoskeletal pain [None]
  - Pain in extremity [None]
  - Exercise tolerance decreased [None]
